FAERS Safety Report 11749589 (Version 2)
Quarter: 2016Q2

REPORT INFORMATION
  Report Type: Report from Study
  Country: US (occurrence: US)
  Receive Date: 20151118
  Receipt Date: 20160517
  Transmission Date: 20160815
  Serious: Yes (Other)
  Sender: FDA-Public Use
  Company Number: US-AMGEN-USASL2015119910

PATIENT
  Age: 65 Year
  Sex: Female

DRUGS (4)
  1. OTEZLA [Concomitant]
     Active Substance: APREMILAST
     Dosage: UNK
  2. CYMBALTA [Concomitant]
     Active Substance: DULOXETINE HYDROCHLORIDE
     Dosage: 25 MG, UNK
  3. HYDROCHLOROTHIAZIDE. [Concomitant]
     Active Substance: HYDROCHLOROTHIAZIDE
     Dosage: UNK
  4. ENBREL [Suspect]
     Active Substance: ETANERCEPT
     Indication: PSORIATIC ARTHROPATHY
     Dosage: UNK
     Route: 065
     Dates: start: 2012

REACTIONS (13)
  - Facial paralysis [Unknown]
  - Psoriatic arthropathy [Not Recovered/Not Resolved]
  - Neurological symptom [Unknown]
  - Hypoaesthesia [Unknown]
  - Speech disorder [Unknown]
  - Cognitive disorder [Unknown]
  - Eyelid ptosis [Unknown]
  - Crying [Unknown]
  - Dizziness [Unknown]
  - Fall [Unknown]
  - Vision blurred [Unknown]
  - Mental impairment [Unknown]
  - Fear [Unknown]
